FAERS Safety Report 4886825-7 (Version None)
Quarter: 2006Q1

REPORT INFORMATION
  Report Type: 
  Country: None (occurrence: None)
  Receive Date: 20060119
  Receipt Date: 20060119
  Transmission Date: 20060701
  Serious: Yes (Hospitalization)
  Sender: FDA-Public Use
  Company Number: None

PATIENT
  Age: 67 Year
  Sex: Male
  Weight: 85.3 kg

DRUGS (16)
  1. ZOCOR [Suspect]
  2. FUROSEMIDE [Concomitant]
  3. FORMOTEROL FUMARATE [Concomitant]
  4. CLOPIDOGREL BISULFATE [Concomitant]
  5. INSULIN NOVOLIN 70/30 (NPH/REG) [Concomitant]
  6. METFORMIN HCL [Concomitant]
  7. PAROXETINE HCL [Concomitant]
  8. ASPIRIN [Concomitant]
  9. ENALAPRIL MALEATE [Concomitant]
  10. METOPROLOL TARTRATE [Concomitant]
  11. OMEPRAZOLE [Concomitant]
  12. ENALAPRIL [Concomitant]
  13. MULTIVITAMINS/ZINC (CENTRUM) [Concomitant]
  14. INSULIN REG HUMAN    NOVOLIN R [Concomitant]
  15. ALBUTEROL SULFATE AND IPRATROPIUM BROMIDE [Concomitant]
  16. NITROGLYCERIN [Concomitant]

REACTIONS (1)
  - HEPATIC ENZYME ABNORMAL [None]
